FAERS Safety Report 19514875 (Version 1)
Quarter: 2021Q3

REPORT INFORMATION
  Report Type: Spontaneous
  Country: CA (occurrence: CA)
  Receive Date: 20210709
  Receipt Date: 20210709
  Transmission Date: 20211014
  Serious: Yes (Hospitalization, Other)
  Sender: FDA-Public Use
  Company Number: CA-COVIS PHARMA GMBH-2021COV23124

PATIENT
  Sex: Female

DRUGS (8)
  1. ARNUITY ELLIPTA [Suspect]
     Active Substance: FLUTICASONE FUROATE
     Indication: PRODUCT USED FOR UNKNOWN INDICATION
     Route: 065
  2. ALVESCO [Suspect]
     Active Substance: CICLESONIDE
     Indication: PRODUCT USED FOR UNKNOWN INDICATION
     Route: 055
  3. PREDNISONE. [Suspect]
     Active Substance: PREDNISONE
     Indication: PRODUCT USED FOR UNKNOWN INDICATION
     Dosage: 3.0 MONTHS
     Route: 065
     Dates: start: 201911, end: 202001
  4. INDACATEROL MALEATE [Suspect]
     Active Substance: INDACATEROL MALEATE
     Indication: PRODUCT USED FOR UNKNOWN INDICATION
     Dosage: 1 PUFF(S), QD, 110/50 MCG
     Route: 065
  5. NUCALA [Suspect]
     Active Substance: MEPOLIZUMAB
     Indication: PRODUCT USED FOR UNKNOWN INDICATION
     Route: 042
  6. PULMICORT TURBUHALER [Suspect]
     Active Substance: BUDESONIDE
     Indication: PRODUCT USED FOR UNKNOWN INDICATION
     Dosage: 4 PUFF(S), BID, 200MCG
     Route: 055
  7. SALBUTAMOL SULFATE [Suspect]
     Active Substance: ALBUTEROL SULFATE
     Indication: PRODUCT USED FOR UNKNOWN INDICATION
     Dosage: 2 PUFF(S), PRN, 100MCG2.0DF UNKNOWN
     Route: 065
  8. NUCALA [Suspect]
     Active Substance: MEPOLIZUMAB
     Indication: PRODUCT USED FOR UNKNOWN INDICATION
     Route: 042

REACTIONS (9)
  - Loss of personal independence in daily activities [Unknown]
  - Wheezing [Unknown]
  - Therapeutic product effect incomplete [Unknown]
  - Therapeutic product effect decreased [Unknown]
  - Hip fracture [Unknown]
  - Dyspnoea [Unknown]
  - Oxygen saturation decreased [Unknown]
  - Sleep disorder due to a general medical condition [Unknown]
  - Asthma [Unknown]
